FAERS Safety Report 8022349-6 (Version None)
Quarter: 2012Q1

REPORT INFORMATION
  Report Type: 
  Country: None (occurrence: None)
  Receive Date: 20120104
  Receipt Date: 20111220
  Transmission Date: 20120608
  Serious: Yes (Hospitalization)
  Sender: FDA-Public Use
  Company Number: TH-ROCHE-708730

PATIENT
  Age: 38 Year
  Sex: Female
  Weight: 49 kg

DRUGS (3)
  1. BROMHEXINE HYDROCHLORIDE [Concomitant]
     Indication: COUGH
     Route: 048
     Dates: start: 20100106, end: 20100112
  2. TAMIFLU [Suspect]
     Indication: ANTIVIRAL PROPHYLAXIS
     Dosage: TOTAL STUDY DRUG TAKEN: 112 DOSES
     Route: 048
     Dates: start: 20100111, end: 20100430
  3. ACETYLCYSTEINE [Concomitant]
     Indication: COUGH
     Route: 048
     Dates: start: 20100106, end: 20100112

REACTIONS (1)
  - BLIGHTED OVUM [None]
